FAERS Safety Report 4787408-X (Version None)
Quarter: 2005Q4

REPORT INFORMATION
  Report Type: 
  Country: None (occurrence: None)
  Receive Date: 20051003
  Receipt Date: 20050919
  Transmission Date: 20060501
  Serious: Yes (Death)
  Sender: FDA-Public Use
  Company Number: MK200509-0215-1

PATIENT
  Age: 37 Year
  Sex: Male

DRUGS (1)
  1. FLUOXETINE [Suspect]
     Indication: SUICIDE ATTEMPT
     Dosage: 12 GM, ONE TIME, PO
     Route: 048
     Dates: end: 20050101

REACTIONS (11)
  - ANXIETY [None]
  - BLOOD GLUCOSE INCREASED [None]
  - BLOOD PRESSURE INCREASED [None]
  - BRADYCARDIA [None]
  - CARDIAC ARREST [None]
  - ELECTROCARDIOGRAM QT CORRECTED INTERVAL PROLONGED [None]
  - GRAND MAL CONVULSION [None]
  - OVERDOSE [None]
  - SINUS TACHYCARDIA [None]
  - TOXICOLOGIC TEST ABNORMAL [None]
  - VENTRICULAR FIBRILLATION [None]
